FAERS Safety Report 7731764-7 (Version None)
Quarter: 2011Q3

REPORT INFORMATION
  Report Type: 
  Country: None (occurrence: None)
  Receive Date: 20110906
  Receipt Date: 20110823
  Transmission Date: 20111222
  Serious: Yes (Other)
  Sender: FDA-Public Use
  Company Number: PHHY2011FR75747

PATIENT
  Age: 77 Year
  Sex: Male

DRUGS (2)
  1. STALEVO 100 [Concomitant]
     Dosage: 125 MG EVERY 2 HOURS,1 TABLET IN THE NIGHT
  2. EXELON [Suspect]
     Indication: PARKINSONIAN CRISIS
     Dosage: 9.5 MG/24 HOURS
     Route: 062

REACTIONS (5)
  - ARRHYTHMIA [None]
  - URINE OUTPUT INCREASED [None]
  - DRUG INEFFECTIVE [None]
  - BLOOD PRESSURE FLUCTUATION [None]
  - DISORIENTATION [None]
